FAERS Safety Report 11920043 (Version 3)
Quarter: 2018Q4

REPORT INFORMATION
  Report Type: Spontaneous
  Country: US (occurrence: US)
  Receive Date: 20160115
  Receipt Date: 20181104
  Transmission Date: 20190204
  Serious: Yes (Disabling, Other)
  Sender: FDA-Public Use
  Company Number: US-PFIZER INC-2016015814

PATIENT
  Age: 55 Year
  Sex: Female

DRUGS (1)
  1. LYRICA [Suspect]
     Active Substance: PREGABALIN
     Indication: NEUROPATHY PERIPHERAL
     Dosage: UNK

REACTIONS (9)
  - Neoplasm malignant [Not Recovered/Not Resolved]
  - Escherichia infection [Recovering/Resolving]
  - Cerebrovascular accident [Unknown]
  - Cerebral microangiopathy [Not Recovered/Not Resolved]
  - Bladder disorder [Not Recovered/Not Resolved]
  - Memory impairment [Unknown]
  - Migraine [Unknown]
  - Malaise [Unknown]
  - Bladder cancer [Not Recovered/Not Resolved]

NARRATIVE: CASE EVENT DATE: 2015
